APPROVED DRUG PRODUCT: REVATIO
Active Ingredient: SILDENAFIL CITRATE
Strength: EQ 10MG BASE/ML
Dosage Form/Route: FOR SUSPENSION;ORAL
Application: N203109 | Product #001 | TE Code: AB
Applicant: VIATRIS SPECIALTY LLC
Approved: Aug 30, 2012 | RLD: Yes | RS: Yes | Type: RX

EXCLUSIVITY:
Code: M-287 | Date: Jan 31, 2026